FAERS Safety Report 24291492 (Version 1)
Quarter: 2024Q3

REPORT INFORMATION
  Report Type: Spontaneous
  Country: US (occurrence: None)
  Receive Date: 20240906
  Receipt Date: 20240906
  Transmission Date: 20241017
  Serious: No
  Sender: DOMPE FARMACEUTICI
  Company Number: US-FARMAPROD-202308-202309-2729

PATIENT
  Age: 75 Year
  Sex: Female

DRUGS (18)
  1. OXERVATE [Suspect]
     Active Substance: CENEGERMIN-BKBJ
     Indication: Neurotrophic keratopathy
     Route: 047
     Dates: start: 20230905
  2. BASAGLAR [Concomitant]
     Active Substance: INSULIN GLARGINE
     Dosage: KWIKPEN
  3. HUMALOG [Concomitant]
     Active Substance: INSULIN LISPRO
  4. LOPERAMIDE [Concomitant]
     Active Substance: LOPERAMIDE
  5. UNSPECIFIED INGREDIENT [Concomitant]
     Active Substance: UNSPECIFIED INGREDIENT
  6. LYRICA [Concomitant]
     Active Substance: PREGABALIN
  7. FLONASE ALLERGY RELIEF [Concomitant]
     Active Substance: FLUTICASONE PROPIONATE
  8. TIZANIDINE HYDROCHLORIDE [Concomitant]
     Active Substance: TIZANIDINE HYDROCHLORIDE
  9. PILOCARPINE HYDROCHLORIDE [Concomitant]
     Active Substance: PILOCARPINE HYDROCHLORIDE
  10. VITAMIN D2 [Concomitant]
     Active Substance: ERGOCALCIFEROL
  11. METHIMAZOLE [Concomitant]
     Active Substance: METHIMAZOLE
  12. HYDROCHLOROTHIAZIDE\LOSARTAN [Concomitant]
     Active Substance: HYDROCHLOROTHIAZIDE\LOSARTAN
  13. METOPROLOL TARTRATE [Concomitant]
     Active Substance: METOPROLOL TARTRATE
  14. PLAQUENIL [Concomitant]
     Active Substance: HYDROXYCHLOROQUINE SULFATE
  15. ZETIA [Concomitant]
     Active Substance: EZETIMIBE
  16. ELIQUIS [Concomitant]
     Active Substance: APIXABAN
  17. EYSUVIS [Concomitant]
     Active Substance: LOTEPREDNOL ETABONATE
  18. TURVAYA [Concomitant]
     Dosage: 0.03 IU / SPRAY

REACTIONS (5)
  - Eye pain [Unknown]
  - Eye swelling [Unknown]
  - Swelling of eyelid [Unknown]
  - Eyelid margin crusting [Unknown]
  - Vision blurred [Unknown]

NARRATIVE: CASE EVENT DATE: 20230907
